FAERS Safety Report 21435064 (Version 2)
Quarter: 2022Q4

REPORT INFORMATION
  Report Type: Spontaneous
  Country: US (occurrence: US)
  Receive Date: 20221010
  Receipt Date: 20221027
  Transmission Date: 20230113
  Serious: No
  Sender: FDA-Public Use
  Company Number: US-SA-SAC20221003001460

PATIENT
  Sex: Female

DRUGS (1)
  1. DUPIXENT [Suspect]
     Active Substance: DUPILUMAB
     Indication: Asthma
     Dosage: 300MG QOW
     Route: 058

REACTIONS (6)
  - Injection site urticaria [Recovered/Resolved]
  - Injection site inflammation [Unknown]
  - Skin exfoliation [Unknown]
  - Injection site pain [Unknown]
  - Rash macular [Unknown]
  - Injection site pruritus [Recovered/Resolved]
